FAERS Safety Report 8761322 (Version 5)
Quarter: 2012Q4

REPORT INFORMATION
  Report Type: 
  Country: US (occurrence: US)
  Receive Date: 20120830
  Receipt Date: 20121210
  Transmission Date: 20130627
  Serious: Yes (Disabling, Other)
  Sender: FDA-Public Use
  Company Number: US-009507513-1205USA00036

PATIENT

DRUGS (4)
  1. FOSAMAX [Suspect]
     Indication: OSTEOPENIA
     Dosage: 70 mg, qw
     Route: 048
     Dates: start: 20040525, end: 201002
  2. FOSAMAX [Suspect]
     Indication: OSTEOPOROSIS
  3. FOSAMAX PLUS D [Suspect]
     Dosage: UNK
     Route: 048
     Dates: start: 20070102
  4. ALENDRONATE SODIUM [Suspect]
     Dosage: UNK
     Dates: start: 20080818

REACTIONS (26)
  - Femoral neck fracture [Not Recovered/Not Resolved]
  - Internal fixation of fracture [Unknown]
  - Low turnover osteopathy [Not Recovered/Not Resolved]
  - Osteoporosis [Not Recovered/Not Resolved]
  - Stress fracture [Not Recovered/Not Resolved]
  - Femur fracture [Not Recovered/Not Resolved]
  - Osteotomy [Unknown]
  - Bruxism [Unknown]
  - Kidney infection [Unknown]
  - Irritable bowel syndrome [Unknown]
  - Hypertension [Unknown]
  - Metatarsal excision [Unknown]
  - Toe operation [Unknown]
  - Atelectasis [Unknown]
  - Mitral valve prolapse [Unknown]
  - Urinary tract infection [Unknown]
  - Cellulitis [Unknown]
  - Pain in jaw [Recovered/Resolved]
  - Constipation [Unknown]
  - Hyperlipidaemia [Unknown]
  - Hyperlipidaemia [Unknown]
  - Osteoarthritis [Unknown]
  - Pulmonary hypertension [Unknown]
  - Tonsillectomy [Unknown]
  - Cataract operation [Unknown]
  - Limb operation [Unknown]
